FAERS Safety Report 9601799 (Version 1)
Quarter: 2013Q4

REPORT INFORMATION
  Report Type: Spontaneous
  Country: US (occurrence: None)
  Receive Date: 20131004
  Receipt Date: 20131004
  Transmission Date: 20140711
  Serious: Yes (Hospitalization)
  Sender: FDA-Public Use
  Company Number: None

PATIENT
  Age: 67 Year
  Sex: Female
  Weight: 62.14 kg

DRUGS (6)
  1. VIT D2 [Suspect]
     Indication: BLOOD PARATHYROID HORMONE
     Route: 048
  2. LEVOTHYROXINE [Concomitant]
  3. CALCIUM [Concomitant]
  4. MAGNESIUM [Concomitant]
  5. D3 [Concomitant]
  6. CLARITIN [Concomitant]

REACTIONS (5)
  - Vertigo [None]
  - Dysstasia [None]
  - Headache [None]
  - Confusional state [None]
  - Hypersomnia [None]
